FAERS Safety Report 4706205-4 (Version None)
Quarter: 2005Q2

REPORT INFORMATION
  Report Type: 
  Country: None (occurrence: None)
  Receive Date: 20050627
  Receipt Date: 20050307
  Transmission Date: 20051028
  Serious: No
  Sender: FDA-Public Use
  Company Number: IND-AE-05-SAN-011

PATIENT
  Age: 57 Year
  Sex: Female
  Weight: 181.4388 kg

DRUGS (5)
  1. SANCTURA [Suspect]
     Indication: HYPERTONIC BLADDER
     Dosage: 20MG-BID-ORAL
     Route: 048
     Dates: start: 20050223, end: 20050302
  2. SANCTURA [Suspect]
     Indication: HYPERTONIC BLADDER
     Dosage: 20MG-QD-ORAL
     Route: 048
     Dates: start: 20050302
  3. RANITIDINE [Concomitant]
  4. URSODIOL [Concomitant]
  5. HYDROCHLOROTHIAZIDE [Concomitant]

REACTIONS (6)
  - ABDOMINAL PAIN UPPER [None]
  - DRY MOUTH [None]
  - EPISTAXIS [None]
  - GASTROOESOPHAGEAL REFLUX DISEASE [None]
  - HAEMATOCHEZIA [None]
  - NASAL DRYNESS [None]
